FAERS Safety Report 16761618 (Version 1)
Quarter: 2019Q3

REPORT INFORMATION
  Report Type: Spontaneous
  Country: JP (occurrence: JP)
  Receive Date: 20190830
  Receipt Date: 20190830
  Transmission Date: 20191005
  Serious: Yes (Hospitalization)
  Sender: FDA-Public Use
  Company Number: PHHY2019JP201525

PATIENT
  Age: 18 Day
  Sex: Male

DRUGS (4)
  1. ETHAMBUTOL [Concomitant]
     Active Substance: ETHAMBUTOL HYDROCHLORIDE
     Indication: CONGENITAL TUBERCULOSIS
     Dosage: 15 MG/KG, UNK
     Route: 065
  2. ISONIAZID. [Suspect]
     Active Substance: ISONIAZID
     Indication: CONGENITAL TUBERCULOSIS
     Dosage: 10 MG/KG, UNK
     Route: 065
  3. PYRAZINAMIDE. [Concomitant]
     Active Substance: PYRAZINAMIDE
     Indication: CONGENITAL TUBERCULOSIS
     Dosage: 30 MG/KG, UNK
     Route: 065
  4. RIFAMPICIN [Suspect]
     Active Substance: RIFAMPIN
     Indication: CONGENITAL TUBERCULOSIS
     Dosage: 15 MG/KG, UNK
     Route: 065

REACTIONS (3)
  - Blood bilirubin increased [Recovering/Resolving]
  - Product use issue [Unknown]
  - Hepatic enzyme increased [Recovering/Resolving]
